FAERS Safety Report 4289114-7 (Version None)
Quarter: 2004Q1

REPORT INFORMATION
  Report Type: 
  Country: None (occurrence: None)
  Receive Date: 20040209
  Receipt Date: 20040209
  Transmission Date: 20041129
  Serious: Yes (Death)
  Sender: FDA-Public Use
  Company Number: None

PATIENT
  Age: 80 Year
  Sex: Female
  Weight: 54.4316 kg

DRUGS (10)
  1. METHOTREXATE [Suspect]
     Indication: PSORIASIS
     Dosage: 5 MG ALT QD ALTERNA ORAL
     Route: 048
     Dates: start: 20030220, end: 20030404
  2. ASPIRIN [Concomitant]
  3. CELEXA [Concomitant]
  4. M.V.I. [Concomitant]
  5. NOVOLIN 70/30 [Concomitant]
  6. CARBAMAZIPEINE [Concomitant]
  7. EXELON [Concomitant]
  8. APAP TAB [Concomitant]
  9. MOM [Concomitant]
  10. DARVOCET [Concomitant]

REACTIONS (13)
  - APLASTIC ANAEMIA [None]
  - DIET REFUSAL [None]
  - HYPOTENSION [None]
  - MENTAL STATUS CHANGES [None]
  - ORAL PAIN [None]
  - PANCYTOPENIA [None]
  - PNEUMONIA [None]
  - RESPIRATORY DISTRESS [None]
  - SEPSIS [None]
  - SKIN LESION [None]
  - STAPHYLOCOCCAL INFECTION [None]
  - STOMATITIS [None]
  - TREATMENT NONCOMPLIANCE [None]
